FAERS Safety Report 6336811-5 (Version None)
Quarter: 2009Q3

REPORT INFORMATION
  Report Type: 
  Country: None (occurrence: None)
  Receive Date: 20090831
  Receipt Date: 20090831
  Transmission Date: 20100115
  Serious: Yes (Life-Threatening, Disabling)
  Sender: FDA-Public Use
  Company Number: None

PATIENT
  Age: 15 Year
  Sex: Female
  Weight: 44.4525 kg

DRUGS (1)
  1. AMNESTEEM [Suspect]
     Indication: ACNE
     Dosage: 60 MG 1 X DAY PO
     Route: 048
     Dates: start: 20080901, end: 20090201

REACTIONS (12)
  - ANXIETY [None]
  - CRYING [None]
  - DECREASED INTEREST [None]
  - DISTURBANCE IN ATTENTION [None]
  - EPISTAXIS [None]
  - FATIGUE [None]
  - FEAR OF DEATH [None]
  - HALLUCINATION, AUDITORY [None]
  - HYPERSOMNIA [None]
  - INSOMNIA [None]
  - IRRITABILITY [None]
  - SOCIAL AVOIDANT BEHAVIOUR [None]
